FAERS Safety Report 19545368 (Version 5)
Quarter: 2024Q4

REPORT INFORMATION
  Report Type: Spontaneous
  Country: US (occurrence: US)
  Receive Date: 20210713
  Receipt Date: 20241216
  Transmission Date: 20250115
  Serious: No
  Sender: PFIZER
  Company Number: US-PFIZER INC-2021400835

PATIENT
  Age: 70 Year
  Sex: Female
  Weight: 46.259 kg

DRUGS (1)
  1. IBRANCE [Suspect]
     Active Substance: PALBOCICLIB
     Indication: Prophylaxis
     Dosage: 125 MG

REACTIONS (1)
  - Panic reaction [Unknown]
